FAERS Safety Report 6696993-2 (Version None)
Quarter: 2010Q2

REPORT INFORMATION
  Report Type: 
  Country: None (occurrence: None)
  Receive Date: 20100426
  Receipt Date: 20100422
  Transmission Date: 20101027
  Serious: Yes (Death)
  Sender: FDA-Public Use
  Company Number: PHHY2010GB04307

PATIENT
  Sex: Male

DRUGS (5)
  1. CLOZARIL [Suspect]
     Indication: SCHIZOPHRENIA
     Dosage: 200 MG/DAY
     Dates: start: 20061002
  2. VALPROIC ACID [Concomitant]
     Indication: MOOD SWINGS
     Dosage: UNK
     Route: 048
     Dates: start: 20070101
  3. DIAZEPAM [Concomitant]
     Indication: ANXIETY
     Dosage: 4 MG, QD
     Route: 048
     Dates: start: 20070101
  4. DIAZEPAM [Concomitant]
     Indication: TIC
  5. CITALOPRAM HYDROBROMIDE [Concomitant]
     Indication: MOOD SWINGS
     Dosage: 10 MG, QD
     Route: 048
     Dates: start: 20070101

REACTIONS (2)
  - CHRONIC OBSTRUCTIVE PULMONARY DISEASE [None]
  - RESPIRATORY FAILURE [None]
